FAERS Safety Report 14434472 (Version 1)
Quarter: 2018Q1

REPORT INFORMATION
  Report Type: Report from Study
  Country: ES (occurrence: ES)
  Receive Date: 20180124
  Receipt Date: 20180124
  Transmission Date: 20180509
  Serious: Yes (Hospitalization)
  Sender: FDA-Public Use
  Company Number: ES-BAUSCH-BL-2018-001708

PATIENT
  Age: 28 Year
  Sex: Female

DRUGS (2)
  1. METFORMINA [Suspect]
     Active Substance: METFORMIN HYDROCHLORIDE
     Indication: INTENTIONAL OVERDOSE
     Route: 048
  2. ENANTYUM 12,5 MG COMPRIMIDOS, 20 COMPRIMIDOS [Suspect]
     Active Substance: DEXKETOPROFEN TROMETAMOL
     Indication: INTENTIONAL OVERDOSE
     Dosage: 20 TABLETS
     Route: 048

REACTIONS (2)
  - Lactic acidosis [Recovered/Resolved]
  - Intentional overdose [Unknown]

NARRATIVE: CASE EVENT DATE: 20160430
